FAERS Safety Report 24569055 (Version 1)
Quarter: 2024Q4

REPORT INFORMATION
  Report Type: Spontaneous
  Country: US (occurrence: US)
  Receive Date: 20241031
  Receipt Date: 20241031
  Transmission Date: 20250114
  Serious: Yes (Other)
  Sender: PFIZER
  Company Number: US-PFIZER INC-202400287032

PATIENT
  Age: 75 Year
  Sex: Male
  Weight: 90.26 kg

DRUGS (6)
  1. DEPO-TESTOSTERONE [Suspect]
     Active Substance: TESTOSTERONE CYPIONATE
     Indication: Blood testosterone decreased
     Dosage: 0.3 CC ONCE A WEEK
     Dates: start: 1994
  2. CLOPIDOGREL [Concomitant]
     Active Substance: CLOPIDOGREL BISULFATE
     Indication: Antiplatelet therapy
     Dosage: UNK
  3. MORPHINE [Concomitant]
     Active Substance: MORPHINE
     Indication: Pain
     Dosage: 2- 15 MG (TIME RELEASED)
  4. HYDROCODONE [Concomitant]
     Active Substance: HYDROCODONE
     Indication: Pain
     Dosage: 10 MG, 4X/DAY (BUT HE SELDOM TAKES THAT MUCH)
  5. HYDROCODONE [Concomitant]
     Active Substance: HYDROCODONE
     Dosage: 2 DF, DAILY
     Dates: start: 2024
  6. HYDROCODONE [Concomitant]
     Active Substance: HYDROCODONE
     Dosage: 2.5 DF, DAILY
     Dates: start: 2024

REACTIONS (8)
  - Prostate cancer [Recovered/Resolved]
  - Knee arthroplasty [Unknown]
  - Neck surgery [Unknown]
  - Spinal operation [Unknown]
  - Cardiac pacemaker insertion [Unknown]
  - Anaemia [Recovered/Resolved]
  - COVID-19 [Unknown]
  - Constipation [Unknown]

NARRATIVE: CASE EVENT DATE: 20170101
